FAERS Safety Report 14206809 (Version 1)
Quarter: 2017Q4

REPORT INFORMATION
  Report Type: Report from Study
  Country: GB (occurrence: GB)
  Receive Date: 20171121
  Receipt Date: 20171121
  Transmission Date: 20180321
  Serious: Yes (Hospitalization, Other)
  Sender: FDA-Public Use
  Company Number: GB-ROCHE-2022352

PATIENT
  Sex: Female

DRUGS (1)
  1. ROACTEMRA [Suspect]
     Active Substance: TOCILIZUMAB
     Indication: RHEUMATOID ARTHRITIS
     Route: 058
     Dates: start: 20151007

REACTIONS (4)
  - Liver abscess [Unknown]
  - Hypotension [Unknown]
  - Loss of consciousness [Unknown]
  - Feeling cold [Unknown]

NARRATIVE: CASE EVENT DATE: 201607
